FAERS Safety Report 21311443 (Version 1)
Quarter: 2022Q3

REPORT INFORMATION
  Report Type: Report from Study
  Country: AU (occurrence: AU)
  Receive Date: 20220909
  Receipt Date: 20220909
  Transmission Date: 20221027
  Serious: Yes (Hospitalization)
  Sender: FDA-Public Use
  Company Number: AU-NOVARTISPH-NVSC2022AU202449

PATIENT
  Sex: Female

DRUGS (1)
  1. MAYZENT [Suspect]
     Active Substance: SIPONIMOD
     Indication: Secondary progressive multiple sclerosis
     Dosage: 1 MG, QD
     Route: 048
     Dates: start: 20201124, end: 20220907

REACTIONS (6)
  - Animal bite [Unknown]
  - Infected bite [Unknown]
  - Peripheral swelling [Unknown]
  - Pustule [Unknown]
  - Erythema [Unknown]
  - Condition aggravated [Unknown]
